FAERS Safety Report 22612091 (Version 1)
Quarter: 2023Q2

REPORT INFORMATION
  Report Type: Report from Study
  Country: GB (occurrence: GB)
  Receive Date: 20230617
  Receipt Date: 20230617
  Transmission Date: 20230722
  Serious: Yes (Other)
  Sender: FDA-Public Use
  Company Number: GB-002147023-NVSC2023GB032666

PATIENT
  Sex: Female

DRUGS (1)
  1. KESIMPTA [Suspect]
     Active Substance: OFATUMUMAB
     Indication: Relapsing-remitting multiple sclerosis
     Dosage: 20 MG, QMO
     Route: 058
     Dates: start: 202212

REACTIONS (8)
  - Haemorrhage [Unknown]
  - Immunodeficiency [Recovered/Resolved]
  - Coagulopathy [Recovered/Resolved]
  - Anxiety [Unknown]
  - Depressed mood [Unknown]
  - Fatigue [Unknown]
  - Neuralgia [Unknown]
  - Insomnia [Unknown]

NARRATIVE: CASE EVENT DATE: 20230101
